FAERS Safety Report 16403661 (Version 1)
Quarter: 2019Q2

REPORT INFORMATION
  Report Type: Spontaneous
  Country: US (occurrence: US)
  Receive Date: 20190607
  Receipt Date: 20190607
  Transmission Date: 20190711
  Serious: Yes (Other)
  Sender: FDA-Public Use
  Company Number: US-SA-2019SA154754

PATIENT
  Age: 64 Year
  Sex: Male

DRUGS (4)
  1. DUPIXENT [Suspect]
     Active Substance: DUPILUMAB
     Indication: ASTHMA
     Dosage: 300 MG, QOW
     Route: 058
     Dates: start: 20190222
  2. TYLENOL [Concomitant]
     Active Substance: ACETAMINOPHEN
  3. TUMS [Concomitant]
     Active Substance: CALCIUM CARBONATE
  4. GAS-X [Concomitant]
     Active Substance: DIMETHICONE

REACTIONS (1)
  - Cataract [Unknown]
